FAERS Safety Report 15429608 (Version 1)
Quarter: 2018Q3

REPORT INFORMATION
  Report Type: Spontaneous
  Country: US (occurrence: US)
  Receive Date: 20180917
  Receipt Date: 20180917
  Transmission Date: 20181010
  Serious: Yes (Hospitalization)
  Sender: FDA-Public Use
  Company Number: None

PATIENT
  Age: 65 Year
  Sex: Male

DRUGS (2)
  1. TAMSULOSIN [Suspect]
     Active Substance: TAMSULOSIN
     Indication: PROSTATIC DISORDER
     Route: 048
     Dates: start: 20120416
  2. TADALAFIL [Suspect]
     Active Substance: TADALAFIL
     Indication: ERECTILE DYSFUNCTION
     Route: 048
     Dates: start: 20160516

REACTIONS (5)
  - Confusional state [None]
  - Atrial fibrillation [None]
  - Supraventricular tachycardia [None]
  - Orthostatic hypotension [None]
  - Syncope [None]

NARRATIVE: CASE EVENT DATE: 20180525
